FAERS Safety Report 9463292 (Version 1)
Quarter: 2013Q3

REPORT INFORMATION
  Report Type: Spontaneous
  Country: US (occurrence: US)
  Receive Date: 20130819
  Receipt Date: 20130819
  Transmission Date: 20140515
  Serious: No
  Sender: FDA-Public Use
  Company Number: US-B.I. PHARMACEUTICALS,INC./RIDGEFIELD-2013-BI-24259BP

PATIENT
  Age: 53 Year
  Sex: Female

DRUGS (9)
  1. TRADJENTA [Suspect]
     Indication: DIABETES MELLITUS
     Dosage: 5 MG
     Route: 048
     Dates: start: 20130710
  2. CARAFATE [Concomitant]
     Dosage: 4 G
     Route: 048
  3. NEXIUM [Concomitant]
     Dosage: 80 MG
     Route: 048
  4. METFORMIN [Concomitant]
     Indication: DIABETES MELLITUS
     Dosage: 1000 MG
     Route: 048
  5. AMARYL [Concomitant]
     Dosage: 4 MG
     Route: 048
  6. LISINOPRIL [Concomitant]
     Indication: HYPERTENSION
     Dosage: 40 MG
     Route: 048
  7. NORVASC [Concomitant]
     Dosage: 5 MG
     Route: 048
  8. HYDROCHLOROTHIAZIDE [Concomitant]
     Dosage: 25 MG
     Route: 048
  9. BENTYL [Concomitant]
     Route: 048

REACTIONS (4)
  - Erythema [Recovered/Resolved]
  - Flank pain [Recovered/Resolved]
  - Urinary retention [Recovered/Resolved]
  - Lipase increased [Unknown]
